FAERS Safety Report 10183858 (Version 2)
Quarter: 2014Q2

REPORT INFORMATION
  Report Type: Spontaneous
  Country: US (occurrence: US)
  Receive Date: 20140520
  Receipt Date: 20140623
  Transmission Date: 20141212
  Serious: Yes (Hospitalization)
  Sender: FDA-Public Use
  Company Number: US-BAYER-2014-073386

PATIENT
  Age: 36 Year
  Sex: Female
  Weight: 40.82 kg

DRUGS (4)
  1. MIRENA [Suspect]
     Indication: CONTRACEPTION
     Dosage: 20 MCG/24HR, CONT
     Route: 015
     Dates: start: 20090528
  2. METOPROLOL [Concomitant]
  3. TOPAMAX [Concomitant]
  4. MAXALT [Concomitant]

REACTIONS (6)
  - Device dislocation [None]
  - Device dislocation [None]
  - Injury [None]
  - Pain [None]
  - Emotional distress [None]
  - Device issue [None]
